FAERS Safety Report 25815797 (Version 1)
Quarter: 2025Q3

REPORT INFORMATION
  Report Type: Spontaneous
  Country: US (occurrence: US)
  Receive Date: 20250918
  Receipt Date: 20250918
  Transmission Date: 20251020
  Serious: No
  Sender: CATALYST PHARMA
  Company Number: US-CATALYSTPHARMACEUTICALPARTNERS-US-CATA-24-00922

PATIENT
  Sex: Male

DRUGS (4)
  1. FYCOMPA [Suspect]
     Active Substance: PERAMPANEL
     Indication: Seizure
     Dosage: ONE TABLET EVERY DAY (10 MG)
     Route: 048
     Dates: start: 20210628, end: 202408
  2. FYCOMPA [Suspect]
     Active Substance: PERAMPANEL
     Indication: Cerebral palsy
     Dosage: HALF A PILL EVERY DAY, 5 MG (HALF THE PRESCRIBED DOSE)
     Route: 048
     Dates: start: 202408
  3. FYCOMPA [Suspect]
     Active Substance: PERAMPANEL
     Indication: Epilepsy
  4. FYCOMPA [Suspect]
     Active Substance: PERAMPANEL
     Indication: Seizure

REACTIONS (8)
  - Tremor [Not Recovered/Not Resolved]
  - Abdominal pain upper [Not Recovered/Not Resolved]
  - Withdrawal syndrome [Not Recovered/Not Resolved]
  - Inability to afford medication [Unknown]
  - Vomiting [Not Recovered/Not Resolved]
  - Off label use [Unknown]
  - Product use issue [Unknown]
  - Intentional underdose [Unknown]

NARRATIVE: CASE EVENT DATE: 20240101
